FAERS Safety Report 4472899-4 (Version None)
Quarter: 2004Q4

REPORT INFORMATION
  Report Type: 
  Country: None (occurrence: None)
  Receive Date: 20041012
  Receipt Date: 20041012
  Transmission Date: 20050328
  Serious: No
  Sender: FDA-Public Use
  Company Number: None

PATIENT
  Age: 20 Year
  Sex: Female
  Weight: 113.3993 kg

DRUGS (1)
  1. DEPO-PROVERA [Suspect]
     Indication: CONTRACEPTION
     Dosage: EVERY 3 MONTHS INTRAVENOU
     Route: 042
     Dates: start: 19990210, end: 20010908

REACTIONS (14)
  - ANAEMIA [None]
  - BACK PAIN [None]
  - CHEST PAIN [None]
  - COLD SWEAT [None]
  - DEPRESSION [None]
  - EDUCATIONAL PROBLEM [None]
  - FEAR [None]
  - HEADACHE [None]
  - INSOMNIA [None]
  - LEARNING DISORDER [None]
  - MEMORY IMPAIRMENT [None]
  - NAUSEA [None]
  - NERVOUS SYSTEM DISORDER [None]
  - SYNCOPE [None]
